FAERS Safety Report 5836261-1 (Version None)
Quarter: 2008Q3

REPORT INFORMATION
  Report Type: 
  Country: None (occurrence: None)
  Receive Date: 20080730
  Receipt Date: 20080715
  Transmission Date: 20090109
  Serious: Yes (Other)
  Sender: FDA-Public Use
  Company Number: PBAR-7GKLLE

PATIENT
  Sex: Male

DRUGS (2)
  1. DURAPREP [Suspect]
     Indication: PREOPERATIVE CARE
     Dosage: 26 ML, TOPICAL; SINGLE APPLICATION
     Route: 061
  2. SKIN PROTECTANT [Concomitant]

REACTIONS (1)
  - SKIN DISORDER [None]
